FAERS Safety Report 20731649 (Version 1)
Quarter: 2022Q2

REPORT INFORMATION
  Report Type: Spontaneous
  Country: US (occurrence: US)
  Receive Date: 20220420
  Receipt Date: 20220420
  Transmission Date: 20220721
  Serious: No
  Sender: FDA-Public Use
  Company Number: US-SA-SAC20220419000027

PATIENT
  Sex: Male

DRUGS (4)
  1. AUBAGIO [Suspect]
     Active Substance: TERIFLUNOMIDE
     Indication: Gait disturbance
     Dosage: 1 DF, QD
     Route: 048
  2. SIMVASTATIN [Concomitant]
     Active Substance: SIMVASTATIN
  3. TRAZODONE [Concomitant]
     Active Substance: TRAZODONE HYDROCHLORIDE
  4. TESTOSTERONE CYPIONATE [Concomitant]
     Active Substance: TESTOSTERONE CYPIONATE

REACTIONS (2)
  - Abdominal discomfort [Not Recovered/Not Resolved]
  - Product use in unapproved indication [Unknown]
